FAERS Safety Report 10250051 (Version 1)
Quarter: 2014Q2

REPORT INFORMATION
  Report Type: Spontaneous
  Country: US (occurrence: US)
  Receive Date: 20140620
  Receipt Date: 20140620
  Transmission Date: 20141212
  Serious: No
  Sender: FDA-Public Use
  Company Number: US-BRISTOL-MYERS SQUIBB COMPANY-20610705

PATIENT
  Age: 82 Year
  Sex: Female
  Weight: 76.19 kg

DRUGS (2)
  1. ELIQUIS [Suspect]
     Dosage: LOT NO:32837/663 OR S OR 8
     Dates: start: 201404
  2. ALLOPURINOL [Concomitant]

REACTIONS (1)
  - Back pain [Unknown]
